FAERS Safety Report 19551982 (Version 1)
Quarter: 2021Q3

REPORT INFORMATION
  Report Type: Report from Study
  Country: JP (occurrence: JP)
  Receive Date: 20210715
  Receipt Date: 20210715
  Transmission Date: 20211014
  Serious: Yes (Other)
  Sender: FDA-Public Use
  Company Number: NVSJ2021JP010725

PATIENT
  Age: 52 Year
  Sex: Male

DRUGS (1)
  1. EZETIMIBE TABLETS [Suspect]
     Active Substance: EZETIMIBE
     Indication: LOW DENSITY LIPOPROTEIN INCREASED
     Dosage: UNK
     Route: 048
     Dates: start: 202105

REACTIONS (1)
  - Transient ischaemic attack [Unknown]
